APPROVED DRUG PRODUCT: TETRABENAZINE
Active Ingredient: TETRABENAZINE
Strength: 25MG
Dosage Form/Route: TABLET;ORAL
Application: A206093 | Product #002 | TE Code: AB
Applicant: APOTEX INC
Approved: Mar 17, 2020 | RLD: No | RS: No | Type: RX